FAERS Safety Report 9713979 (Version 1)
Quarter: 2013Q4

REPORT INFORMATION
  Report Type: Spontaneous
  Country: US (occurrence: US)
  Receive Date: 20131126
  Receipt Date: 20131126
  Transmission Date: 20140711
  Serious: Yes (Hospitalization)
  Sender: FDA-Public Use
  Company Number: US-GILEAD-2008-0018438

PATIENT
  Sex: Female
  Weight: 90.72 kg

DRUGS (10)
  1. LETAIRIS [Suspect]
     Indication: PULMONARY ARTERIAL HYPERTENSION
     Route: 048
     Dates: start: 20080508
  2. HYDRALAZINE [Concomitant]
  3. CLONIDINE [Concomitant]
  4. COUMADIN [Concomitant]
  5. LASIX [Concomitant]
  6. AMARYL [Concomitant]
  7. PREMARIN [Concomitant]
  8. ZOLOFT [Concomitant]
  9. NAMENDA [Concomitant]
  10. PREVACID [Concomitant]

REACTIONS (1)
  - Oedema peripheral [Unknown]
